FAERS Safety Report 25846580 (Version 1)
Quarter: 2025Q3

REPORT INFORMATION
  Report Type: Spontaneous
  Country: GB (occurrence: GB)
  Receive Date: 20250925
  Receipt Date: 20250925
  Transmission Date: 20251021
  Serious: Yes (Other)
  Sender: AMGEN
  Company Number: GB-AMGEN-GBRSP2025185571

PATIENT

DRUGS (2)
  1. ADALIMUMAB [Suspect]
     Active Substance: ADALIMUMAB
     Indication: Pouchitis
     Route: 065
  2. ADALIMUMAB [Suspect]
     Active Substance: ADALIMUMAB
     Indication: Enteritis

REACTIONS (12)
  - Neuropathy peripheral [Unknown]
  - Osteomyelitis [Unknown]
  - Pneumonia [Unknown]
  - Drug effective for unapproved indication [Unknown]
  - Adverse event [Unknown]
  - Arthralgia [Unknown]
  - Drug ineffective for unapproved indication [Unknown]
  - Drug specific antibody present [Unknown]
  - Rash [Unknown]
  - Intestinal anastomosis complication [Unknown]
  - Loss of therapeutic response [Unknown]
  - Off label use [Unknown]
